FAERS Safety Report 17053201 (Version 1)
Quarter: 2019Q4

REPORT INFORMATION
  Report Type: Spontaneous
  Country: US (occurrence: US)
  Receive Date: 20191120
  Receipt Date: 20191120
  Transmission Date: 20200122
  Serious: No
  Sender: FDA-Public Use
  Company Number: US-PFIZER INC-2019498039

PATIENT
  Age: 84 Year
  Sex: Female
  Weight: 89.8 kg

DRUGS (1)
  1. IBRANCE [Suspect]
     Active Substance: PALBOCICLIB
     Indication: BREAST CANCER METASTATIC
     Dosage: 125 MG, CYCLIC (D1-21 Q28 D)
     Route: 048
     Dates: start: 201803

REACTIONS (1)
  - Neoplasm progression [Unknown]
